FAERS Safety Report 24593813 (Version 1)
Quarter: 2024Q4

REPORT INFORMATION
  Report Type: Spontaneous
  Country: FR (occurrence: FR)
  Receive Date: 20241108
  Receipt Date: 20241108
  Transmission Date: 20250115
  Serious: Yes (Other)
  Sender: PFIZER
  Company Number: None

PATIENT
  Age: 83 Year
  Sex: Female

DRUGS (8)
  1. ATRACURIUM BESYLATE [Suspect]
     Active Substance: ATRACURIUM BESYLATE
     Indication: Anaesthesia
     Dosage: 25 MG, SINGLE
     Route: 042
     Dates: start: 20240919, end: 20240919
  2. AUGMENTIN [Suspect]
     Active Substance: AMOXICILLIN\CLAVULANATE POTASSIUM
     Indication: Antibiotic prophylaxis
     Dosage: 2 G, SINGLE
     Route: 042
     Dates: start: 20240919, end: 20240919
  3. REMIFENTANIL HYDROCHLORIDE [Suspect]
     Active Substance: REMIFENTANIL HYDROCHLORIDE
     Indication: Anaesthesia
     Dosage: 521 UG, SINGLE
     Route: 042
     Dates: start: 20240919, end: 20240919
  4. PROPOFOL [Suspect]
     Active Substance: PROPOFOL
     Indication: Anaesthesia
     Dosage: 757 MG, SINGLE
     Route: 042
     Dates: start: 20240919, end: 20240919
  5. NOREPINEPHRINE [Suspect]
     Active Substance: NOREPINEPHRINE\NOREPINEPHRINE BITARTRATE
     Indication: Anaesthesia
     Dosage: 417 UG, SINGLE
     Route: 042
     Dates: start: 20240919, end: 20240919
  6. DEXAMETHASONE [Suspect]
     Active Substance: DEXAMETHASONE
     Indication: Anaesthesia
     Dosage: 8 MG, SINGLE
     Route: 042
     Dates: start: 20240919, end: 20240919
  7. PROTAMINE [Suspect]
     Active Substance: PROTAMINE
     Indication: Anaesthesia
     Dosage: 30 MG, SINGLE
     Route: 042
     Dates: start: 20240919, end: 20240919
  8. HEPARIN SODIUM [Concomitant]
     Active Substance: HEPARIN SODIUM
     Indication: Prophylaxis
     Dosage: 5000 IU, SINGLE
     Route: 042
     Dates: start: 20240919, end: 20240919

REACTIONS (1)
  - Thrombocytopenia [Recovering/Resolving]

NARRATIVE: CASE EVENT DATE: 20240920
